FAERS Safety Report 5129093-3 (Version None)
Quarter: 2006Q4

REPORT INFORMATION
  Report Type: 
  Country: None (occurrence: None)
  Receive Date: 20061016
  Receipt Date: 20061016
  Transmission Date: 20070319
  Serious: Yes (Other)
  Sender: FDA-Public Use
  Company Number: None

PATIENT
  Age: 59 Year
  Sex: Male

DRUGS (10)
  1. REVLIMID [Suspect]
     Indication: MULTIPLE MYELOMA
     Dosage: 25MG QD PO
     Route: 048
     Dates: start: 20060821, end: 20061012
  2. DEXAMETHASONE TAB [Concomitant]
  3. HYDROXYZINE [Concomitant]
  4. METOPROLOL [Concomitant]
  5. HYDROMORPHONE HCL [Concomitant]
  6. LOPERAMIDE [Concomitant]
  7. AREDIA [Concomitant]
  8. PROCHLORPERAZINE [Concomitant]
  9. ALLOPURINOL [Concomitant]
  10. MORPHINE [Concomitant]

REACTIONS (2)
  - PLATELET COUNT DECREASED [None]
  - WHITE BLOOD CELL COUNT DECREASED [None]
